FAERS Safety Report 10162154 (Version 3)
Quarter: 2014Q4

REPORT INFORMATION
  Report Type: Spontaneous
  Country: AU (occurrence: AU)
  Receive Date: 20140509
  Receipt Date: 20141107
  Transmission Date: 20150528
  Serious: Yes (Hospitalization, Other)
  Sender: FDA-Public Use
  Company Number: AU-AMGEN-AUSSP2014033266

PATIENT
  Age: 17 Year
  Sex: Male
  Weight: 108 kg

DRUGS (3)
  1. LEFLUNOMIDE. [Concomitant]
     Active Substance: LEFLUNOMIDE
     Dosage: 10 MG, 1X/DAY, MANE
     Dates: start: 20120319
  2. METHOTREXATE [Concomitant]
     Active Substance: METHOTREXATE
     Indication: JUVENILE IDIOPATHIC ARTHRITIS
     Dosage: 25 MG, WEEKLY
     Route: 048
     Dates: start: 2009
  3. ENBREL [Suspect]
     Active Substance: ETANERCEPT
     Indication: JUVENILE IDIOPATHIC ARTHRITIS
     Dosage: 25 MG, 2X/WEEK
     Route: 058
     Dates: start: 20131216

REACTIONS (1)
  - Renal cell carcinoma [Recovered/Resolved]

NARRATIVE: CASE EVENT DATE: 20140131
